FAERS Safety Report 8986330 (Version 1)
Quarter: 2012Q4

REPORT INFORMATION
  Report Type: Spontaneous
  Country: US (occurrence: None)
  Receive Date: 20121219
  Receipt Date: 20121219
  Transmission Date: 20130627
  Serious: No
  Sender: FDA-Public Use
  Company Number: None

PATIENT
  Age: 43 Year
  Sex: Female

DRUGS (1)
  1. COPAXONE 20MG TEVA [Suspect]
     Indication: MULTIPLE SCLEROSIS
     Dosage: 20mg QD Subcutaneous
     Route: 058
     Dates: start: 20110617

REACTIONS (5)
  - Injection site bruising [None]
  - Injection site urticaria [None]
  - Injection site discolouration [None]
  - Injection site erythema [None]
  - Injection site pain [None]
